FAERS Safety Report 4445544-1 (Version None)
Quarter: 2004Q3

REPORT INFORMATION
  Report Type: 
  Country: None (occurrence: None)
  Receive Date: 20040804
  Receipt Date: 20030710
  Transmission Date: 20050211
  Serious: No
  Sender: FDA-Public Use
  Company Number: 201570

PATIENT
  Age: 64 Year
  Sex: Female
  Weight: 77.1 kg

DRUGS (1)
  1. HERCEPTIN [Suspect]
     Indication: BREAST CANCER
     Dosage: 2 MG/KG 1/WEEK, INTRAVENOUS
     Route: 042
     Dates: start: 20030127

REACTIONS (1)
  - CELLULITIS [None]
